FAERS Safety Report 10456377 (Version 1)
Quarter: 2014Q3

REPORT INFORMATION
  Report Type: Spontaneous
  Country: AU (occurrence: AU)
  Receive Date: 20140916
  Receipt Date: 20140916
  Transmission Date: 20150326
  Serious: Yes (Hospitalization)
  Sender: FDA-Public Use
  Company Number: AU-SA-2014SA122416

PATIENT
  Age: 35 Year
  Sex: Male

DRUGS (7)
  1. TESTOSTERONE PROPIONATE [Concomitant]
     Active Substance: TESTOSTERONE PROPIONATE
     Dosage: 2 IM INJECTIONS
     Route: 030
  2. TESTOSTERONE ENANTATE [Concomitant]
     Active Substance: TESTOSTERONE
     Dosage: 2 IM INJECTIONS
     Route: 030
  3. METHANDROSTENOLONE [Concomitant]
     Active Substance: METHANDROSTENOLONE
  4. SPIRONOLACTONE. [Suspect]
     Active Substance: SPIRONOLACTONE
     Indication: WEIGHT DECREASED
     Route: 065
  5. FUROSEMIDE. [Suspect]
     Active Substance: FUROSEMIDE
     Indication: WEIGHT DECREASED
     Route: 065
  6. LETROZOLE. [Suspect]
     Active Substance: LETROZOLE
     Indication: GYNAECOMASTIA
     Route: 065
  7. TAMOXIFEN [Concomitant]
     Active Substance: TAMOXIFEN
     Indication: GYNAECOMASTIA

REACTIONS (10)
  - Drug abuse [Unknown]
  - Myalgia [Recovering/Resolving]
  - Off label use [Unknown]
  - Dehydration [Recovered/Resolved]
  - Prothrombin time prolonged [Recovered/Resolved]
  - Sinus tachycardia [Recovering/Resolving]
  - Blood creatinine increased [Recovered/Resolved]
  - Protein total decreased [Recovering/Resolving]
  - Blood urea increased [Recovering/Resolving]
  - Renal failure acute [Recovering/Resolving]
